FAERS Safety Report 7780645-1 (Version None)
Quarter: 2011Q3

REPORT INFORMATION
  Report Type: 
  Country: None (occurrence: None)
  Receive Date: 20110927
  Receipt Date: 20110207
  Transmission Date: 20111222
  Serious: No
  Sender: FDA-Public Use
  Company Number: US-BRISTOL-MYERS SQUIBB COMPANY-15534381

PATIENT
  Age: 72 Year
  Sex: Female

DRUGS (3)
  1. AVAPRO [Suspect]
     Dosage: 7 YRS AGO
  2. ASPIRIN [Concomitant]
  3. LIPITOR [Concomitant]

REACTIONS (1)
  - BLOOD PRESSURE INCREASED [None]
